FAERS Safety Report 9129327 (Version 1)
Quarter: 2013Q1

REPORT INFORMATION
  Report Type: Report from Study
  Country: US (occurrence: US)
  Receive Date: 20130228
  Receipt Date: 20130228
  Transmission Date: 20140127
  Serious: No
  Sender: FDA-Public Use
  Company Number: US-ABBOTT-13P-163-1035403-00

PATIENT
  Age: 60 Year
  Sex: Male
  Weight: 81.72 kg

DRUGS (2)
  1. ANDROGEL [Suspect]
     Indication: BLOOD TESTOSTERONE DECREASED
     Dosage: ONE PUMP ACTUATION PER DAY
     Dates: start: 20121227, end: 20130102
  2. ANDROGEL [Suspect]
     Dosage: TWO PUMP ACTUATIONS PER DAY
     Dates: start: 20130103, end: 20130111

REACTIONS (1)
  - Drug ineffective [Not Recovered/Not Resolved]
